FAERS Safety Report 9819519 (Version 1)
Quarter: 2014Q1

REPORT INFORMATION
  Report Type: Report from Study
  Country: AR (occurrence: AR)
  Receive Date: 20140115
  Receipt Date: 20140115
  Transmission Date: 20141002
  Serious: Yes (Hospitalization)
  Sender: FDA-Public Use
  Company Number: PHHY2014AR004270

PATIENT
  Age: 69 Year
  Sex: Male

DRUGS (1)
  1. DIOVAN [Suspect]
     Indication: HYPERTENSION
     Dosage: 160 MG, A DAY
     Route: 048
     Dates: start: 2007

REACTIONS (5)
  - Fall [Recovering/Resolving]
  - Malaise [Recovering/Resolving]
  - Cerebrovascular accident [Recovering/Resolving]
  - Syncope [Recovering/Resolving]
  - Head discomfort [Unknown]
